FAERS Safety Report 15883280 (Version 1)
Quarter: 2019Q1

REPORT INFORMATION
  Report Type: Spontaneous
  Country: DE (occurrence: DE)
  Receive Date: 20190129
  Receipt Date: 20190129
  Transmission Date: 20190417
  Serious: Yes (Life-Threatening, Hospitalization, Disabling)
  Sender: FDA-Public Use
  Company Number: DE-ACCORD-103594

PATIENT
  Age: 80 Year
  Sex: Male

DRUGS (10)
  1. AMIODARONE [Interacting]
     Active Substance: AMIODARONE
     Indication: PRODUCT USED FOR UNKNOWN INDICATION
     Dosage: 200 MG, 1-0-0-0
  2. TROSPIUM/TROSPIUM CHLORIDE [Concomitant]
     Dosage: 5 MG, 1-0-0-0
  3. TORASEMIDE [Interacting]
     Active Substance: TORSEMIDE
     Indication: PRODUCT USED FOR UNKNOWN INDICATION
     Dosage: 5 MG, 1-0-0-0
  4. RAMIPRIL. [Suspect]
     Active Substance: RAMIPRIL
     Indication: PRODUCT USED FOR UNKNOWN INDICATION
     Dosage: 2.5 MG, 1-0-0-0
  5. CLOPIDOGREL [Concomitant]
     Active Substance: CLOPIDOGREL BISULFATE
     Dosage: 75 MG, 1-0-0-0
  6. PANTOPRAZOLE [Concomitant]
     Active Substance: PANTOPRAZOLE
     Dosage: 40 MG, 1-0-0-0
  7. TAMSULOSIN/TAMSULOSIN HYDROCHLORIDE [Concomitant]
     Dosage: 0.4 MG, 1-0-0-0
  8. METOPROLOL. [Interacting]
     Active Substance: METOPROLOL
     Indication: PRODUCT USED FOR UNKNOWN INDICATION
     Dosage: 23.75 MG, 1-0-0-0
  9. SODIUM BICARBONATE. [Concomitant]
     Active Substance: SODIUM BICARBONATE
     Dosage: 100 MG, 1-1-1-0
  10. SIMVASTATIN. [Concomitant]
     Active Substance: SIMVASTATIN
     Dosage: 20 MG, 0-0-1-0

REACTIONS (5)
  - Arteriosclerotic gangrene [Unknown]
  - Product prescribing error [Unknown]
  - Labelled drug-drug interaction medication error [Unknown]
  - Pain [Unknown]
  - Arterial occlusive disease [Unknown]
